FAERS Safety Report 14356469 (Version 1)
Quarter: 2018Q1

REPORT INFORMATION
  Report Type: Spontaneous
  Country: US (occurrence: US)
  Receive Date: 20180105
  Receipt Date: 20180105
  Transmission Date: 20180509
  Serious: Yes (Life-Threatening, Hospitalization)
  Sender: FDA-Public Use
  Company Number: US-ACTELION-A-US2017-164732

PATIENT
  Age: 8 Month
  Sex: Male
  Weight: 4.82 kg

DRUGS (8)
  1. TRACLEER [Suspect]
     Active Substance: BOSENTAN
     Indication: PULMONARY HYPERTENSION
     Dosage: 10.9 MG, Q12HRS
     Route: 048
  2. ROCALTROL [Concomitant]
     Active Substance: CALCITRIOL
     Dosage: 0.2 MCG, QD
     Dates: start: 20171108, end: 20171201
  3. SILDENAFIL. [Concomitant]
     Active Substance: SILDENAFIL
     Dosage: 14 MG, Q6HRS
     Dates: start: 20170608
  4. DIURIL [Concomitant]
     Active Substance: CHLOROTHIAZIDE
     Dosage: 80 MG, Q12HRS
     Dates: start: 20170617
  5. TRACLEER [Suspect]
     Active Substance: BOSENTAN
     Dosage: 7.2 MG, BID
     Route: 048
  6. SPIRONOLACTONE. [Concomitant]
     Active Substance: SPIRONOLACTONE
     Dosage: 15 MG, Q12HRS
     Dates: start: 20170922
  7. TRACLEER [Suspect]
     Active Substance: BOSENTAN
     Dosage: UNK
     Route: 048
     Dates: start: 20171113
  8. LASIX [Concomitant]
     Active Substance: FUROSEMIDE
     Dosage: 20 MG, Q12HRS
     Dates: start: 20170428

REACTIONS (2)
  - Respiratory failure [Not Recovered/Not Resolved]
  - Sepsis [Recovered/Resolved]

NARRATIVE: CASE EVENT DATE: 20171201
